FAERS Safety Report 9136273 (Version 1)
Quarter: 2013Q1

REPORT INFORMATION
  Report Type: Spontaneous
  Country: US (occurrence: US)
  Receive Date: 20130304
  Receipt Date: 20130304
  Transmission Date: 20140127
  Serious: No
  Sender: FDA-Public Use
  Company Number: US-ABBOTT-12P-163-1016155-00

PATIENT
  Age: 71 None
  Sex: Male
  Weight: 90.8 kg

DRUGS (3)
  1. ANDROGEL [Suspect]
     Indication: BLOOD TESTOSTERONE DECREASED
     Dosage: 2 PACKETS, AND DECREASED TO 1 PACKET, STOPPED MEDICATION OF 1 MONTH
     Dates: start: 20120614, end: 201209
  2. ANDROGEL [Suspect]
     Dosage: 1 PACKET
     Route: 061
     Dates: start: 201211
  3. VITAMINS [Concomitant]
     Indication: VITAMIN SUPPLEMENTATION
     Dosage: PATIENT DECLINED TO CLARIFY WHICH VITAMINS

REACTIONS (7)
  - Wrong technique in drug usage process [Not Recovered/Not Resolved]
  - Therapy change [Not Recovered/Not Resolved]
  - Bronchitis [Recovering/Resolving]
  - Sinus congestion [Recovering/Resolving]
  - Wheezing [Recovering/Resolving]
  - Cough [Recovering/Resolving]
  - Incorrect drug administration duration [Recovered/Resolved]
